FAERS Safety Report 5478400-0 (Version None)
Quarter: 2007Q4

REPORT INFORMATION
  Report Type: 
  Country: None (occurrence: None)
  Receive Date: 20071005
  Receipt Date: 20070924
  Transmission Date: 20080405
  Serious: Yes (Hospitalization)
  Sender: FDA-Public Use
  Company Number: CHWYE368725SEP07

PATIENT
  Age: 79 Year
  Sex: Male

DRUGS (10)
  1. EFFEXOR [Suspect]
     Route: 048
     Dates: start: 20070809, end: 20070814
  2. EFFEXOR [Suspect]
     Dosage: 75 MG PER DAY
     Route: 048
     Dates: start: 20070815, end: 20070817
  3. TORSEMIDE [Concomitant]
     Route: 048
     Dates: start: 20060101
  4. PRAVASTATIN SODIUM [Concomitant]
     Route: 048
     Dates: start: 20060101
  5. MEMANTINE HCL [Suspect]
     Route: 048
     Dates: start: 20070814, end: 20070817
  6. REMERON [Concomitant]
     Route: 048
     Dates: start: 20070501
  7. REMINYL [Suspect]
     Route: 048
     Dates: start: 20070806, end: 20070809
  8. TEMESTA [Suspect]
     Dosage: 0.5-1.5 MG PER DAY
     Dates: start: 20070723, end: 20070730
  9. ASPIRIN [Concomitant]
     Route: 048
     Dates: start: 20060101, end: 20070725
  10. PLAVIX [Concomitant]
     Route: 048
     Dates: start: 20070719

REACTIONS (5)
  - AGGRESSION [None]
  - DELUSION [None]
  - DRUG WITHDRAWAL SYNDROME [None]
  - RESTLESSNESS [None]
  - SLEEP DISORDER [None]
